FAERS Safety Report 26107565 (Version 1)
Quarter: 2025Q4

REPORT INFORMATION
  Report Type: Spontaneous
  Country: CA (occurrence: CA)
  Receive Date: 20251201
  Receipt Date: 20251201
  Transmission Date: 20260117
  Serious: Yes (Disabling)
  Sender: LUNDBECK
  Company Number: CA-LUNDBECK-DKLU4022177

PATIENT
  Age: 52 Year
  Sex: Male

DRUGS (3)
  1. VYEPTI [Suspect]
     Active Substance: EPTINEZUMAB-JJMR
     Indication: Migraine prophylaxis
     Dosage: 100 MILLIGRAM
     Route: 041
  2. ATENOLOL [Concomitant]
     Active Substance: ATENOLOL
     Indication: Blood pressure abnormal
  3. ELAVIL [Concomitant]
     Active Substance: AMITRIPTYLINE HYDROCHLORIDE
     Indication: Product used for unknown indication

REACTIONS (1)
  - Migraine with aura [Not Recovered/Not Resolved]
